FAERS Safety Report 21036308 (Version 1)
Quarter: 2022Q3

REPORT INFORMATION
  Report Type: Report from Study
  Country: PR (occurrence: PR)
  Receive Date: 20220701
  Receipt Date: 20220701
  Transmission Date: 20221027
  Serious: Yes (Hospitalization)
  Sender: FDA-Public Use
  Company Number: PR-MALLINCKRODT-T202203279

PATIENT
  Age: 0 Year
  Sex: Female

DRUGS (2)
  1. CORTICOTROPIN [Suspect]
     Active Substance: CORTICOTROPIN
     Indication: Infantile spasms
     Dosage: 0.3 MILLILITER, BID
     Route: 030
     Dates: start: 20220624
  2. PEPCID [Concomitant]
     Active Substance: FAMOTIDINE
     Indication: Product used for unknown indication
     Dosage: UNK
     Route: 065

REACTIONS (4)
  - Hospitalisation [Unknown]
  - Irritability [Unknown]
  - Constipation [Not Recovered/Not Resolved]
  - Absence of immediate treatment response [Unknown]

NARRATIVE: CASE EVENT DATE: 20220601
